FAERS Safety Report 13622643 (Version 1)
Quarter: 2017Q2

REPORT INFORMATION
  Report Type: Not Available
  Country: AU (occurrence: AU)
  Receive Date: 20170607
  Receipt Date: 20170607
  Transmission Date: 20170830
  Serious: Yes (Other)
  Sender: FDA-Public Use
  Company Number: AU-IDTAUSTRALIA-2017-AU-000025

PATIENT
  Age: 63 Year
  Sex: Male

DRUGS (2)
  1. CLARITHROMYCIN EXTENDED-RELEASE (NON-SPECIFIC) [Suspect]
     Active Substance: CLARITHROMYCIN
     Dosage: 500MG TWICE DAILY
  2. RIFAMPICIN [Suspect]
     Active Substance: RIFAMPIN
     Dosage: 600MG DAILY

REACTIONS (3)
  - Skin ulcer [Unknown]
  - Acid fast bacilli infection [Unknown]
  - Paradoxical drug reaction [Unknown]
